FAERS Safety Report 17132593 (Version 2)
Quarter: 2019Q4

REPORT INFORMATION
  Report Type: Report from Study
  Country: US (occurrence: US)
  Receive Date: 20191210
  Receipt Date: 20191213
  Transmission Date: 20200122
  Serious: Yes (Other)
  Sender: FDA-Public Use
  Company Number: NVSC2019US063045

PATIENT
  Sex: Female

DRUGS (1)
  1. GLATOPA [Suspect]
     Active Substance: GLATIRAMER ACETATE
     Indication: MULTIPLE SCLEROSIS
     Dosage: 20 MG
     Route: 058

REACTIONS (7)
  - Multiple sclerosis [Unknown]
  - Muscle spasms [Unknown]
  - Injection site pain [Unknown]
  - Device issue [Unknown]
  - Mental disorder [Unknown]
  - Injection site haemorrhage [Unknown]
  - Injection site mass [Unknown]
